FAERS Safety Report 10246717 (Version 1)
Quarter: 2014Q2

REPORT INFORMATION
  Report Type: Spontaneous
  Country: GB (occurrence: GB)
  Receive Date: 20140619
  Receipt Date: 20140619
  Transmission Date: 20141212
  Serious: Yes (Disabling)
  Sender: FDA-Public Use
  Company Number: GB-B.I. PHARMACEUTICALS,INC./RIDGEFIELD-2014-BI-27330UK

PATIENT
  Sex: Male

DRUGS (7)
  1. TIOTROPIUM [Suspect]
     Indication: CHRONIC OBSTRUCTIVE PULMONARY DISEASE
     Route: 055
     Dates: start: 20140324, end: 20140422
  2. AMINOPHYLLINE [Concomitant]
     Indication: DYSPNOEA
     Route: 042
     Dates: start: 20140318, end: 20140321
  3. CLARITHROMYCIN [Concomitant]
     Dosage: 1000 MG
     Route: 048
     Dates: start: 20140321, end: 20140323
  4. PENICILLIN V [Concomitant]
     Indication: CHRONIC OBSTRUCTIVE PULMONARY DISEASE
     Dosage: 4000 MG
     Route: 048
     Dates: start: 20140321, end: 20140323
  5. PENICILLIN V [Concomitant]
     Indication: RESPIRATORY FAILURE
  6. TAZOCIN [Concomitant]
     Indication: CHRONIC OBSTRUCTIVE PULMONARY DISEASE
     Dosage: 13.5 G
     Route: 048
     Dates: start: 20140318, end: 20140321
  7. TAZOCIN [Concomitant]
     Indication: RESPIRATORY FAILURE

REACTIONS (2)
  - Condition aggravated [Unknown]
  - Dyspnoea at rest [Recovered/Resolved]
